FAERS Safety Report 10379221 (Version 2)
Quarter: 2014Q3

REPORT INFORMATION
  Report Type: Spontaneous
  Country: US (occurrence: US)
  Receive Date: 20140812
  Receipt Date: 20140812
  Transmission Date: 20150326
  Serious: Yes (Other)
  Sender: FDA-Public Use
  Company Number: US-BRISTOL-MYERS SQUIBB COMPANY-19049345

PATIENT
  Age: 44 Year
  Sex: Female

DRUGS (6)
  1. TRUVADA [Suspect]
     Active Substance: EMTRICITABINE\TENOFOVIR DISOPROXIL FUMARATE
     Dates: start: 20090508, end: 20120713
  2. TOPAMAX [Concomitant]
     Active Substance: TOPIRAMATE
     Indication: CONVULSION
  3. REYATAZ [Suspect]
     Active Substance: ATAZANAVIR SULFATE
     Dates: start: 20090508, end: 20120713
  4. NORVIR [Suspect]
     Active Substance: RITONAVIR
     Dates: start: 20090508, end: 20120713
  5. POTASSIUM [Concomitant]
     Active Substance: POTASSIUM
  6. LASIX [Concomitant]
     Active Substance: FUROSEMIDE
     Indication: HYPERTENSION

REACTIONS (4)
  - Jaundice [Recovered/Resolved]
  - Nausea [Recovered/Resolved]
  - Fatigue [Recovered/Resolved]
  - Vomiting [Recovered/Resolved]
